FAERS Safety Report 19232966 (Version 2)
Quarter: 2021Q2

REPORT INFORMATION
  Report Type: Spontaneous
  Country: CH (occurrence: CH)
  Receive Date: 20210507
  Receipt Date: 20210604
  Transmission Date: 20210717
  Serious: Yes (Other)
  Sender: FDA-Public Use
  Company Number: CH-ABBVIE-21K-151-3892783-00

PATIENT
  Age: 71 Year
  Sex: Female
  Weight: 86 kg

DRUGS (1)
  1. RINVOQ [Suspect]
     Active Substance: UPADACITINIB
     Indication: RHEUMATOID ARTHRITIS
     Route: 048
     Dates: start: 202012, end: 20210423

REACTIONS (9)
  - Abdominal pain [Not Recovered/Not Resolved]
  - Bronchitis [Unknown]
  - Diarrhoea [Not Recovered/Not Resolved]
  - Large intestine polyp [Recovered/Resolved]
  - Intestinal ischaemia [Recovering/Resolving]
  - Anaemia [Not Recovered/Not Resolved]
  - Colitis ischaemic [Recovering/Resolving]
  - Gastrointestinal wall thickening [Unknown]
  - Lung opacity [Unknown]

NARRATIVE: CASE EVENT DATE: 2021
